FAERS Safety Report 6641151-0 (Version None)
Quarter: 2010Q1

REPORT INFORMATION
  Report Type: 
  Country: None (occurrence: None)
  Receive Date: 20100318
  Receipt Date: 20091026
  Transmission Date: 20100710
  Serious: Yes (Other)
  Sender: FDA-Public Use
  Company Number: US-ASTRAZENECA-2009SE18839

PATIENT
  Sex: Male
  Weight: 117.9 kg

DRUGS (6)
  1. ZESTRIL [Suspect]
     Indication: HYPERTENSION
     Route: 048
     Dates: start: 20091007
  2. NIASPAN [Concomitant]
     Dates: end: 20091007
  3. ASPIRIN [Concomitant]
     Dates: end: 20091007
  4. METFORMIN HYDROCHLORIDE [Concomitant]
  5. LOVASTATIN [Concomitant]
  6. METOPROLOL TARTRATE [Concomitant]

REACTIONS (3)
  - ARTHRALGIA [None]
  - OEDEMA [None]
  - RED BLOOD CELL SEDIMENTATION RATE INCREASED [None]
